FAERS Safety Report 9795950 (Version 1)
Quarter: 2014Q1

REPORT INFORMATION
  Report Type: Spontaneous
  Country: US (occurrence: US)
  Receive Date: 20140103
  Receipt Date: 20140103
  Transmission Date: 20141002
  Serious: No
  Sender: FDA-Public Use
  Company Number: US-BAYER-2013-158637

PATIENT
  Age: 49 Year
  Sex: Female

DRUGS (1)
  1. CLIMARA [Suspect]
     Dosage: UNK
     Dates: start: 201309

REACTIONS (5)
  - Drug ineffective [None]
  - Menopausal symptoms [None]
  - Skin reaction [None]
  - Menstrual disorder [None]
  - Product adhesion issue [None]
